FAERS Safety Report 10359212 (Version 2)
Quarter: 2014Q3

REPORT INFORMATION
  Report Type: Spontaneous
  Country: US (occurrence: US)
  Receive Date: 20140804
  Receipt Date: 20140808
  Transmission Date: 20150326
  Serious: Yes (Other)
  Sender: FDA-Public Use
  Company Number: US-ASTRAZENECA-2014SE55460

PATIENT
  Age: 58 Year
  Sex: Female
  Weight: 94.6 kg

DRUGS (1)
  1. ARIMIDEX [Suspect]
     Active Substance: ANASTROZOLE
     Indication: BREAST CANCER FEMALE
     Route: 048

REACTIONS (4)
  - Breast cancer recurrent [Unknown]
  - Adrenal mass [Unknown]
  - Hirsutism [Unknown]
  - Blood testosterone increased [Unknown]
